APPROVED DRUG PRODUCT: ZIPRASIDONE HYDROCHLORIDE
Active Ingredient: ZIPRASIDONE HYDROCHLORIDE
Strength: EQ 40MG BASE
Dosage Form/Route: CAPSULE;ORAL
Application: A077560 | Product #002
Applicant: LUPIN PHARMACEUTICALS INC
Approved: Mar 2, 2012 | RLD: No | RS: No | Type: DISCN